FAERS Safety Report 8176343-5 (Version None)
Quarter: 2012Q1

REPORT INFORMATION
  Report Type: 
  Country: None (occurrence: None)
  Receive Date: 20120227
  Receipt Date: 20120227
  Transmission Date: 20120608
  Serious: No
  Sender: FDA-Public Use
  Company Number: None

PATIENT
  Age: 54 Year
  Sex: Female
  Weight: 48.0813 kg

DRUGS (1)
  1. FLUOXETINE [Suspect]
     Indication: DEPRESSION
     Dosage: 80MG Q AM P.O.
     Route: 048
     Dates: start: 20110101, end: 20110401

REACTIONS (4)
  - PRODUCT SUBSTITUTION ISSUE [None]
  - DECREASED ACTIVITY [None]
  - DEPRESSION [None]
  - CONDITION AGGRAVATED [None]
